FAERS Safety Report 6013998-5 (Version None)
Quarter: 2008Q4

REPORT INFORMATION
  Report Type: 
  Country: None (occurrence: None)
  Receive Date: 20081216
  Receipt Date: 20080611
  Transmission Date: 20090506
  Serious: Yes (Hospitalization, Other)
  Sender: FDA-Public Use
  Company Number: US-WYE-H04436208

PATIENT
  Age: 56 Year
  Sex: Female

DRUGS (5)
  1. EFFEXOR XR [Suspect]
     Indication: MAJOR DEPRESSION
     Dosage: 300 MG 1X PER 1 DAY ORAL : 75 MG DAILY AND THEN TITRATED UP, ORAL
     Route: 048
     Dates: end: 20070917
  2. EFFEXOR XR [Suspect]
     Indication: MAJOR DEPRESSION
     Dosage: 300 MG 1X PER 1 DAY ORAL : 75 MG DAILY AND THEN TITRATED UP, ORAL
     Route: 048
     Dates: start: 20070918
  3. CRESTOR [Concomitant]
  4. SYNTHROID [Concomitant]
  5. XANAX [Concomitant]

REACTIONS (2)
  - PLEURISY [None]
  - PNEUMONIA [None]
